FAERS Safety Report 6178123-9 (Version None)
Quarter: 2009Q2

REPORT INFORMATION
  Report Type: 
  Country: None (occurrence: None)
  Receive Date: 20090504
  Receipt Date: 20090424
  Transmission Date: 20091009
  Serious: Yes (Other)
  Sender: FDA-Public Use
  Company Number: PHHY2009GB16546

PATIENT
  Sex: Male
  Weight: 80 kg

DRUGS (5)
  1. RASILEZ [Suspect]
     Indication: BLOOD PRESSURE INCREASED
     Dosage: 300 MG, ONCE/SINGLE
     Dates: start: 20080311, end: 20080319
  2. PERINDOPRIL [Concomitant]
     Dosage: 8 MG, UNK
     Dates: start: 20060101
  3. ASPIRIN [Concomitant]
     Indication: BLOOD PRESSURE INCREASED
     Dosage: 75 MG, ONCE/SINGLE
     Dates: start: 20060101
  4. ATORVASTATIN [Concomitant]
     Indication: TRANSIENT ISCHAEMIC ATTACK
     Dosage: UNK
     Dates: start: 20060101
  5. BENDROFLUAZIDE [Concomitant]
     Indication: BLOOD CHOLESTEROL INCREASED
     Dosage: UNK
     Dates: start: 20060901

REACTIONS (2)
  - BLOOD PRESSURE INCREASED [None]
  - HEADACHE [None]
